FAERS Safety Report 19376017 (Version 1)
Quarter: 2021Q2

REPORT INFORMATION
  Report Type: Spontaneous
  Country: US (occurrence: US)
  Receive Date: 20210604
  Receipt Date: 20210604
  Transmission Date: 20210717
  Serious: No
  Sender: FDA-Public Use
  Company Number: US-BRAINTREE LABORATORIES, INC.-2020BTE01052

PATIENT
  Age: 76 Year
  Sex: Female

DRUGS (1)
  1. NULYTELY [Suspect]
     Active Substance: POLYETHYLENE GLYCOL 3350\POTASSIUM CHLORIDE\SODIUM BICARBONATE\SODIUM CHLORIDE
     Dosage: 8?12 OZ.
     Route: 048

REACTIONS (2)
  - Malaise [None]
  - Wrong technique in product usage process [None]

NARRATIVE: CASE EVENT DATE: 20200618
